FAERS Safety Report 21672140 (Version 1)
Quarter: 2022Q4

REPORT INFORMATION
  Report Type: Spontaneous
  Country: FR (occurrence: FR)
  Receive Date: 20221202
  Receipt Date: 20221202
  Transmission Date: 20230113
  Serious: Yes (Disabling)
  Sender: FDA-Public Use
  Company Number: None

PATIENT
  Age: 61 Year
  Sex: Male
  Weight: 90 kg

DRUGS (6)
  1. ESCITALOPRAM [Suspect]
     Active Substance: ESCITALOPRAM OXALATE
     Indication: Depression
     Dates: start: 2015, end: 20220604
  2. ASPIRIN [Suspect]
     Active Substance: ASPIRIN
     Indication: Headache
     Dates: start: 202206, end: 202206
  3. KARDEGIC [Suspect]
     Active Substance: ASPIRIN DL-LYSINE
     Indication: Thrombosis prophylaxis
     Dosage: STRENGTH: 160 MG, POWDER FOR ORAL SOLUTION IN SACHET
     Dates: start: 20211123, end: 20220604
  4. ATORVASTATIN [Concomitant]
     Active Substance: ATORVASTATIN
  5. BISOPROLOL [Concomitant]
     Active Substance: BISOPROLOL
  6. Enalapril Maleate, Lercanidipine Hydrochloride [Concomitant]

REACTIONS (1)
  - Cerebral haemorrhage [Recovering/Resolving]

NARRATIVE: CASE EVENT DATE: 20220605
